FAERS Safety Report 23276007 (Version 3)
Quarter: 2023Q4

REPORT INFORMATION
  Report Type: Spontaneous
  Country: JP (occurrence: JP)
  Receive Date: 20231208
  Receipt Date: 20231221
  Transmission Date: 20240109
  Serious: Yes (Other)
  Sender: FDA-Public Use
  Company Number: JP-AMGEN-JPNSP2023216848

PATIENT
  Age: 75 Year
  Sex: Male

DRUGS (3)
  1. BLINCYTO [Suspect]
     Active Substance: BLINATUMOMAB
     Indication: B precursor type acute leukaemia
     Dosage: CENTRAL VENOUS DRIP INFUSION
     Route: 042
     Dates: start: 20231121, end: 202311
  2. BLINCYTO [Suspect]
     Active Substance: BLINATUMOMAB
     Dosage: 28 MICROGRAM, QD (CENTRAL VENOUS DRIP INFUSION)
     Route: 042
     Dates: start: 202311, end: 20231203
  3. VANCOMYCIN [Concomitant]
     Active Substance: VANCOMYCIN
     Dosage: UNK
     Dates: start: 20231126

REACTIONS (4)
  - Acute kidney injury [Unknown]
  - Transient aphasia [Recovered/Resolved]
  - Logorrhoea [Recovered/Resolved]
  - Device related infection [Recovered/Resolved]

NARRATIVE: CASE EVENT DATE: 20231126
